FAERS Safety Report 7333843-5 (Version None)
Quarter: 2011Q1

REPORT INFORMATION
  Report Type: 
  Country: None (occurrence: None)
  Receive Date: 20110307
  Receipt Date: 20110301
  Transmission Date: 20110831
  Serious: Yes (Other)
  Sender: FDA-Public Use
  Company Number: US-ASTRAZENECA-2011SE11159

PATIENT
  Age: 13988 Day
  Sex: Male

DRUGS (16)
  1. RANITIDE [Concomitant]
     Dates: start: 20031118
  2. FLUVOXAMINE [Concomitant]
     Route: 048
     Dates: start: 20010613
  3. BUSPAR [Concomitant]
     Dosage: 30 MG TO 60 MG
     Route: 048
     Dates: start: 20010514
  4. PROZAC [Concomitant]
     Dates: start: 20040420
  5. NITROL [Concomitant]
     Indication: CHEST PAIN
     Dates: start: 20050512
  6. EFFEXOR [Concomitant]
     Dates: start: 20031118
  7. LISINOPRIL [Concomitant]
     Dates: start: 20040218
  8. SEROQUEL [Suspect]
     Dosage: 100 MG TO 800 MG
     Route: 048
     Dates: start: 20010613
  9. PAXIL [Concomitant]
     Dosage: 40 MG TO 60 MG
     Route: 048
     Dates: start: 20010514
  10. CRESTOR [Concomitant]
     Dates: start: 20040218
  11. REMERON [Concomitant]
     Dates: start: 20050627
  12. LOPRESSOR [Concomitant]
     Dates: start: 20031118
  13. BUSPAR [Concomitant]
     Dates: start: 20031118
  14. LESCOL [Concomitant]
     Dates: start: 20031118, end: 20040218
  15. CELEXA [Concomitant]
     Dates: start: 20040420
  16. METFORMIN HCL [Concomitant]
     Dates: start: 20050627

REACTIONS (14)
  - TYPE 2 DIABETES MELLITUS [None]
  - METABOLIC SYNDROME [None]
  - OBESITY [None]
  - TINNITUS [None]
  - NEUROPATHY PERIPHERAL [None]
  - OTITIS EXTERNA [None]
  - HYPERLIPIDAEMIA [None]
  - EAR PAIN [None]
  - CARDIOMEGALY [None]
  - SYNCOPE [None]
  - DIZZINESS [None]
  - HYPERTENSION [None]
  - GASTROOESOPHAGEAL REFLUX DISEASE [None]
  - BRONCHITIS [None]
